FAERS Safety Report 5973265-2 (Version None)
Quarter: 2008Q4

REPORT INFORMATION
  Report Type: 
  Country: None (occurrence: None)
  Receive Date: 20081125
  Receipt Date: 20081111
  Transmission Date: 20090506
  Serious: Yes (Death, Hospitalization, Other)
  Sender: FDA-Public Use
  Company Number: 54348

PATIENT
  Age: 75 Year
  Sex: Female

DRUGS (1)
  1. ADRIAMYCIN (DOXOURBICIN) INJ. USP 10MG/5ML - BEDFORD LABS, INC. [Suspect]
     Indication: B-CELL LYMPHOMA

REACTIONS (3)
  - ACUTE HEPATIC FAILURE [None]
  - HEPATITIS B [None]
  - PARADOXICAL DRUG REACTION [None]
